FAERS Safety Report 5141880-4 (Version None)
Quarter: 2006Q4

REPORT INFORMATION
  Report Type: 
  Country: None (occurrence: None)
  Receive Date: 20061027
  Receipt Date: 20061006
  Transmission Date: 20070319
  Serious: Yes (Congenital Anomaly)
  Sender: FDA-Public Use
  Company Number: 2006SP001186

PATIENT
  Sex: Male
  Weight: 2.94 kg

DRUGS (2)
  1. REBETOL [Suspect]
     Indication: HEPATITIS C
     Dosage: 200 MG; QD; PO
     Route: 048
  2. INTERFERON ALFA (MANUFACTURER UNKNOWN) (INTERFERON ALFA-2B) [Suspect]
     Indication: HEPATITIS C
     Dosage: QW; SC
     Route: 058

REACTIONS (7)
  - DEXTROCARDIA [None]
  - DIAPHRAGMATIC HERNIA [None]
  - EXOMPHALOS [None]
  - FOETAL GROWTH RETARDATION [None]
  - MULTIPLE CONGENITAL ABNORMALITIES [None]
  - NEONATAL DISORDER [None]
  - TRANSMISSION OF DRUG VIA SEMEN [None]
